FAERS Safety Report 15773137 (Version 2)
Quarter: 2019Q1

REPORT INFORMATION
  Report Type: Spontaneous
  Country: US (occurrence: US)
  Receive Date: 20181228
  Receipt Date: 20190304
  Transmission Date: 20190417
  Serious: Yes (Death, Hospitalization, Other)
  Sender: FDA-Public Use
  Company Number: US-PFIZER INC-2018533264

PATIENT
  Age: 62 Year
  Sex: Male

DRUGS (17)
  1. ELMIRON [Concomitant]
     Active Substance: PENTOSAN POLYSULFATE SODIUM
     Dosage: UNK, DAILY
  2. SEROQUEL [Concomitant]
     Active Substance: QUETIAPINE FUMARATE
     Dosage: UNK, DAILY
  3. CHANTIX [Suspect]
     Active Substance: VARENICLINE TARTRATE
     Indication: SMOKING CESSATION THERAPY
     Dosage: 2 DF, DAILY
     Dates: start: 200808
  4. AVODART [Concomitant]
     Active Substance: DUTASTERIDE
     Dosage: UNK, DAILY
  5. LITHIUM. [Concomitant]
     Active Substance: LITHIUM
     Dosage: UNK, DAILY
  6. SIMVASTATIN. [Concomitant]
     Active Substance: SIMVASTATIN
     Dosage: UNK, DAILY
     Dates: start: 2010
  7. DEPLIN [Concomitant]
     Active Substance: LEVOMEFOLATE CALCIUM
     Dosage: UNK, DAILY
  8. HYDROCHLOROTHIAZIDE. [Concomitant]
     Active Substance: HYDROCHLOROTHIAZIDE
     Dosage: UNK, DAILY
  9. TRIGOSAMINE [Concomitant]
     Active Substance: GLUCOSAMINE\HYALURONATE SODIUM
     Dosage: UNK, DAILY
  10. UROXATRAL [Concomitant]
     Active Substance: ALFUZOSIN HYDROCHLORIDE
     Dosage: UNK, DAILY
  11. LAMICTAL [Concomitant]
     Active Substance: LAMOTRIGINE
     Dosage: UNK, DAILY
  12. CRESTOR [Concomitant]
     Active Substance: ROSUVASTATIN CALCIUM
     Dosage: UNK, DAILY
     Dates: start: 2010
  13. AMILOZIDE [Concomitant]
     Dosage: UNK, DAILY
  14. KLONOPIN [Concomitant]
     Active Substance: CLONAZEPAM
     Dosage: UNK, DAILY
  15. DEPAKOTE [Concomitant]
     Active Substance: DIVALPROEX SODIUM
     Dosage: UNK, DAILY
  16. TRAVATAN Z [Concomitant]
     Active Substance: TRAVOPROST
     Dosage: UNK, DAILY
  17. MIRAPEX [Concomitant]
     Active Substance: PRAMIPEXOLE DIHYDROCHLORIDE
     Dosage: UNK, DAILY

REACTIONS (10)
  - Condition aggravated [Unknown]
  - Personality change [Unknown]
  - Chest pain [Unknown]
  - Homicide [Unknown]
  - Organ failure [Unknown]
  - Cardiac disorder [Unknown]
  - Mania [Unknown]
  - Angina pectoris [Unknown]
  - Death [Fatal]
  - Psychotic behaviour [Unknown]

NARRATIVE: CASE EVENT DATE: 200809
